FAERS Safety Report 4599632-X (Version None)
Quarter: 2005Q1

REPORT INFORMATION
  Report Type: 
  Country: None (occurrence: None)
  Receive Date: 20050303
  Receipt Date: 20050210
  Transmission Date: 20050727
  Serious: Yes (Death)
  Sender: FDA-Public Use
  Company Number: USA050290548

PATIENT
  Age: 81 Year
  Sex: Female

DRUGS (1)
  1. EVISTA [Suspect]

REACTIONS (1)
  - DEATH [None]
